FAERS Safety Report 19133944 (Version 1)
Quarter: 2021Q2

REPORT INFORMATION
  Report Type: Spontaneous
  Country: US (occurrence: US)
  Receive Date: 20210414
  Receipt Date: 20210414
  Transmission Date: 20210717
  Serious: No
  Sender: FDA-Public Use
  Company Number: US-BION-008646

PATIENT
  Sex: Female

DRUGS (1)
  1. ALEVE [Suspect]
     Active Substance: NAPROXEN SODIUM
     Indication: PERIPHERAL SWELLING
     Route: 048

REACTIONS (2)
  - Incorrect product administration duration [Not Recovered/Not Resolved]
  - Product use in unapproved indication [Not Recovered/Not Resolved]
